FAERS Safety Report 12099886 (Version 1)
Quarter: 2016Q1

REPORT INFORMATION
  Report Type: Spontaneous
  Country: US (occurrence: US)
  Receive Date: 20160222
  Receipt Date: 20160222
  Transmission Date: 20160526
  Serious: Yes (Other)
  Sender: FDA-Public Use
  Company Number: US-TEVA-636197USA

PATIENT
  Age: 42 Year
  Sex: Male

DRUGS (1)
  1. COPAXONE [Suspect]
     Active Substance: GLATIRAMER ACETATE
     Indication: MULTIPLE SCLEROSIS
     Dosage: UNKNOWN FORM STRENGTH
     Route: 065

REACTIONS (10)
  - Multiple sclerosis relapse [Recovered/Resolved]
  - Constipation [Unknown]
  - Balance disorder [Unknown]
  - Abdominal pain [Unknown]
  - Fatigue [Unknown]
  - Pollakiuria [Unknown]
  - Back pain [Unknown]
  - JC virus test positive [Unknown]
  - Adverse event [Unknown]
  - Tremor [Unknown]

NARRATIVE: CASE EVENT DATE: 2015
